FAERS Safety Report 20752697 (Version 1)
Quarter: 2022Q2

REPORT INFORMATION
  Report Type: Spontaneous
  Country: US (occurrence: None)
  Receive Date: 20220426
  Receipt Date: 20220426
  Transmission Date: 20220721
  Serious: No
  Sender: FDA-Public Use
  Company Number: US-ROCHE-2876218

PATIENT
  Sex: Female

DRUGS (1)
  1. ESBRIET [Suspect]
     Active Substance: PIRFENIDONE
     Indication: Interstitial lung disease
     Dosage: TAKE 1 TAB 3 TIMES A DAY FOR A WEEK FOLLOWED BY 2 TABS 3 TIMES A WEEK FOLLOWED BY 3 TABS THREE TIMES
     Route: 048
     Dates: start: 202106

REACTIONS (1)
  - Dyspepsia [Unknown]
